FAERS Safety Report 7748476-6 (Version None)
Quarter: 2011Q3

REPORT INFORMATION
  Report Type: 
  Country: None (occurrence: None)
  Receive Date: 20110914
  Receipt Date: 20110903
  Transmission Date: 20111222
  Serious: Yes (Hospitalization)
  Sender: FDA-Public Use
  Company Number: DE-BIOGENIDEC-2011BI033731

PATIENT
  Age: 48 Year
  Sex: Female
  Weight: 49 kg

DRUGS (1)
  1. AVONEX [Suspect]
     Indication: MULTIPLE SCLEROSIS
     Route: 030
     Dates: start: 20101001

REACTIONS (3)
  - PYREXIA [None]
  - FATIGUE [None]
  - DIARRHOEA [None]
